FAERS Safety Report 4539481-1 (Version None)
Quarter: 2004Q4

REPORT INFORMATION
  Report Type: 
  Country: None (occurrence: None)
  Receive Date: 20041228
  Receipt Date: 20041117
  Transmission Date: 20050328
  Serious: Yes (Other)
  Sender: FDA-Public Use
  Company Number: 200418936US

PATIENT
  Sex: Female

DRUGS (5)
  1. KETEK [Suspect]
     Indication: EAR INFECTION
     Dosage: DOSE: UNKNOWN
     Route: 048
  2. KETEK [Suspect]
     Indication: PHARYNGOLARYNGEAL PAIN
     Dosage: DOSE: UNKNOWN
     Route: 048
  3. ADVAIR DISKUS 100/50 [Concomitant]
     Indication: ASTHMA
     Dosage: DOSE: UNKNOWN
  4. ALBUTEROL [Concomitant]
     Indication: ASTHMA
     Dosage: DOSE: UNKNOWN
  5. AUGMENTIN '125' [Concomitant]

REACTIONS (6)
  - BENIGN INTRACRANIAL HYPERTENSION [None]
  - PAPILLOEDEMA [None]
  - SWELLING [None]
  - THERAPEUTIC RESPONSE DECREASED [None]
  - VISION BLURRED [None]
  - VISUAL DISTURBANCE [None]
